FAERS Safety Report 5916067-5 (Version None)
Quarter: 2008Q4

REPORT INFORMATION
  Report Type: 
  Country: None (occurrence: None)
  Receive Date: 20081013
  Receipt Date: 20081009
  Transmission Date: 20090506
  Serious: Yes (Death, Hospitalization)
  Sender: FDA-Public Use
  Company Number: JP-BRISTOL-MYERS SQUIBB COMPANY-14330393

PATIENT
  Age: 74 Year
  Sex: Female

DRUGS (8)
  1. TAXOL [Suspect]
     Indication: UTERINE CANCER
     Dosage: 08-08SEP06,175MG/M2;21NOV06-09JAN07,150MG/M2.GIVEN IN CYLCES:TOTAL 3.
     Route: 041
     Dates: start: 20060908, end: 20060908
  2. PARAPLATIN [Suspect]
     Indication: UTERINE CANCER
     Dosage: 08-08SEP06,530MG;21NOV06-09JAN07,340MG.GIVEN IN CYCLES:TOTAL 3
     Route: 041
     Dates: start: 20060908, end: 20060908
  3. DEXAMETHASONE [Concomitant]
     Indication: PREMEDICATION
     Route: 048
     Dates: start: 20060909, end: 20070113
  4. NASEA [Concomitant]
     Indication: PROPHYLAXIS OF NAUSEA AND VOMITING
     Route: 041
     Dates: start: 20060908, end: 20070109
  5. PRIMPERAN TAB [Concomitant]
     Route: 048
     Dates: start: 20060913, end: 20060914
  6. DEXAMETHASONE SODIUM PHOSPHATE [Concomitant]
     Route: 042
     Dates: start: 20060908, end: 20070109
  7. DIPHENHYDRAMINE HCL [Concomitant]
     Indication: PREMEDICATION
     Route: 048
     Dates: start: 20060908, end: 20070109
  8. RANITIDINE HCL [Concomitant]
     Indication: PREMEDICATION
     Route: 042
     Dates: start: 20060908, end: 20070109

REACTIONS (4)
  - DEHYDRATION [None]
  - HYPONATRAEMIA [None]
  - MALIGNANT NEOPLASM PROGRESSION [None]
  - NAUSEA [None]
